FAERS Safety Report 26026828 (Version 1)
Quarter: 2025Q4

REPORT INFORMATION
  Report Type: Spontaneous
  Country: US (occurrence: US)
  Receive Date: 20251111
  Receipt Date: 20251111
  Transmission Date: 20260118
  Serious: Yes (Death, Other)
  Sender: SANOFI AVENTIS
  Company Number: US-SA-2025SA322890

PATIENT
  Age: 41 Year
  Sex: Female
  Weight: 46.44 kg

DRUGS (6)
  1. DUPIXENT [Suspect]
     Active Substance: DUPILUMAB
     Indication: Nasal polyps
     Dosage: 300 MG, QOW
     Route: 058
     Dates: end: 20251011
  2. RIZATRIPTAN [RIZATRIPTAN BENZOATE] [Concomitant]
     Dosage: UNK
  3. XHANCE [Concomitant]
     Active Substance: FLUTICASONE PROPIONATE
     Dosage: UNK
  4. CABERGOLINE [Concomitant]
     Active Substance: CABERGOLINE
     Dosage: UNK
  5. KEPPRA XR [Concomitant]
     Active Substance: LEVETIRACETAM
     Dosage: UNK
  6. VITAMIN D2 [Concomitant]
     Active Substance: ERGOCALCIFEROL
     Dosage: UNK

REACTIONS (4)
  - Cardiac arrest [Fatal]
  - Gastrointestinal necrosis [Fatal]
  - Abdominal pain upper [Fatal]
  - Impaired gastric emptying [Fatal]

NARRATIVE: CASE EVENT DATE: 20251023
